FAERS Safety Report 6924424-3 (Version None)
Quarter: 2010Q3

REPORT INFORMATION
  Report Type: 
  Country: None (occurrence: None)
  Receive Date: 20100811
  Receipt Date: 20100727
  Transmission Date: 20110219
  Serious: Yes (Hospitalization)
  Sender: FDA-Public Use
  Company Number: AUR-APL-2010-01883

PATIENT
  Age: 54 Year
  Sex: Female

DRUGS (8)
  1. CEFTRIAXONE 1MG [Suspect]
     Indication: PNEUMONIA
     Dosage: 1MG, THEN 2MG, DAILY, IV
     Route: 042
  2. AZITHROMYCIN [Suspect]
     Indication: PNEUMONIA
     Dosage: 500MG, DAILY, IV TO PO
     Route: 042
  3. TACROLIMUS [Suspect]
     Dosage: 4MGAM/5MGPM
  4. ATORVASTATIN CALCIUM [Concomitant]
  5. PREDNISONE [Concomitant]
  6. LISINOPRIL [Concomitant]
  7. CONJUGATED ESTROGEN [Concomitant]
  8. SUMATRIPTAN [Concomitant]

REACTIONS (10)
  - BACK PAIN [None]
  - BLOOD CREATINE INCREASED [None]
  - BLOOD UREA INCREASED [None]
  - DIARRHOEA [None]
  - DRUG LEVEL ABOVE THERAPEUTIC [None]
  - DRY MOUTH [None]
  - HAEMOGLOBIN DECREASED [None]
  - NAUSEA [None]
  - PNEUMONIA [None]
  - VOMITING [None]
